FAERS Safety Report 7571824-7 (Version None)
Quarter: 2011Q2

REPORT INFORMATION
  Report Type: 
  Country: None (occurrence: None)
  Receive Date: 20110624
  Receipt Date: 20110621
  Transmission Date: 20111010
  Serious: Yes (Other)
  Sender: FDA-Public Use
  Company Number: US-PFIZER INC-2011091897

PATIENT
  Sex: Female
  Weight: 77 kg

DRUGS (5)
  1. BUSPIRONE [Concomitant]
     Dosage: 10 MG, 2X/DAY
  2. PROPRANOLOL [Concomitant]
     Indication: FAMILIAL TREMOR
     Dosage: 20 MG, 2X/DAY
  3. CHANTIX [Suspect]
     Indication: SMOKING CESSATION THERAPY
     Dosage: UNK
     Route: 048
     Dates: start: 20110425, end: 20110101
  4. LAMOTRIGINE [Concomitant]
     Dosage: UNK
  5. VENLAFAXINE HCL [Suspect]
     Dosage: UNK

REACTIONS (5)
  - RESTLESSNESS [None]
  - AGITATION [None]
  - ANGER [None]
  - DEPRESSION [None]
  - ANXIETY [None]
